FAERS Safety Report 5725827-5 (Version None)
Quarter: 2008Q2

REPORT INFORMATION
  Report Type: 
  Country: None (occurrence: None)
  Receive Date: 20080429
  Receipt Date: 20080416
  Transmission Date: 20081010
  Serious: No
  Sender: FDA-Public Use
  Company Number: 002#2#2008-00255

PATIENT
  Age: 35 Year
  Sex: Female
  Weight: 96.6162 kg

DRUGS (8)
  1. NEUPRO [Suspect]
     Indication: DYSTONIA
     Dosage: 2MG/24H, 1 IN 1 D, TRANSDERMAL
     Route: 062
     Dates: start: 20080111
  2. NEUPRO [Suspect]
     Indication: PARKINSON'S DISEASE
     Dosage: 2MG/24H, 1 IN 1 D, TRANSDERMAL
     Route: 062
     Dates: start: 20080111
  3. REQUIP [Concomitant]
  4. CYMBALTA [Concomitant]
  5. LORAZEPAM [Concomitant]
  6. LUNESTA [Concomitant]
  7. LYRICA [Concomitant]
  8. TRAZODONE HCL [Concomitant]

REACTIONS (2)
  - PHARMACEUTICAL PRODUCT COMPLAINT [None]
  - TOOTH IMPACTED [None]
